FAERS Safety Report 4372959-2 (Version None)
Quarter: 2004Q2

REPORT INFORMATION
  Report Type: 
  Country: None (occurrence: None)
  Receive Date: 20040603
  Receipt Date: 20040527
  Transmission Date: 20050107
  Serious: Yes (Hospitalization)
  Sender: FDA-Public Use
  Company Number: TCI2003A04677

PATIENT
  Age: 74 Year
  Sex: Male

DRUGS (13)
  1. ACTOS [Suspect]
     Indication: DIABETES MELLITUS
     Dosage: 15 MG (15 MG, 1 IN 1 D), PER ORAL
     Route: 048
     Dates: start: 20031217, end: 20031225
  2. HUMALOG [Suspect]
     Dosage: 11 UT (11 UT, 1 IN 1 D), INJECTION
     Dates: start: 20031210, end: 20031226
  3. ASPIRIN [Concomitant]
  4. ISOSORBIDE MONONITRATE [Concomitant]
  5. TICLOPIDINE HYDROCHLORIDE [Concomitant]
  6. CILOSTAZOL [Concomitant]
  7. OMEPRAZOLE [Concomitant]
  8. IRSOGLADINE MALEATE [Concomitant]
  9. MEXILETINE HYDROCHLORIDE [Concomitant]
  10. METILIDOXIN [Concomitant]
  11. RILMAZAFONE [Concomitant]
  12. CAMOSTAT MESILATE [Concomitant]
  13. ATORVASTATIN CALCIUM [Concomitant]

REACTIONS (3)
  - NEUTROPENIA [None]
  - WHITE BLOOD CELL COUNT DECREASED [None]
  - WHITE BLOOD CELL COUNT INCREASED [None]
